FAERS Safety Report 10880387 (Version 2)
Quarter: 2015Q1

REPORT INFORMATION
  Report Type: Spontaneous
  Country: DE (occurrence: DE)
  Receive Date: 20150302
  Receipt Date: 20150302
  Transmission Date: 20150721
  Serious: Yes (Hospitalization)
  Sender: FDA-Public Use
  Company Number: DE-JNJFOC-20150214581

PATIENT
  Age: 17 Year
  Sex: Male
  Weight: 49 kg

DRUGS (3)
  1. DOLORMIN [Suspect]
     Active Substance: IBUPROFEN
     Indication: VIRAL INFECTION
     Route: 048
     Dates: start: 20150114, end: 20150115
  2. DOLORMIN [Suspect]
     Active Substance: IBUPROFEN
     Indication: VIRAL INFECTION
     Route: 048
     Dates: start: 20150115, end: 20150115
  3. DOLORMIN [Suspect]
     Active Substance: IBUPROFEN
     Indication: VIRAL INFECTION
     Route: 048
     Dates: start: 20150115, end: 20150115

REACTIONS (4)
  - Urticaria [Recovered/Resolved]
  - Paraesthesia [Recovered/Resolved]
  - Chills [Recovered/Resolved]
  - Product use issue [Unknown]

NARRATIVE: CASE EVENT DATE: 20150115
